FAERS Safety Report 10063435 (Version 2)
Quarter: 2014Q2

REPORT INFORMATION
  Report Type: Spontaneous
  Country: US (occurrence: US)
  Receive Date: 20140407
  Receipt Date: 20140428
  Transmission Date: 20141212
  Serious: No
  Sender: FDA-Public Use
  Company Number: US-009507513-1404USA002596

PATIENT
  Sex: Male
  Weight: 62 kg

DRUGS (3)
  1. JANUMET [Suspect]
     Indication: DIABETES MELLITUS
     Dosage: 50/1000 MG , TWICE DAILY
     Route: 048
     Dates: start: 2009
  2. METFORMIN [Suspect]
  3. INSULIN [Concomitant]

REACTIONS (2)
  - Diabetes mellitus [Recovering/Resolving]
  - Therapeutic response decreased [Recovering/Resolving]
